FAERS Safety Report 12111154 (Version 1)
Quarter: 2016Q1

REPORT INFORMATION
  Report Type: Spontaneous
  Country: US (occurrence: US)
  Receive Date: 20160224
  Receipt Date: 20160224
  Transmission Date: 20160526
  Serious: Yes (Hospitalization)
  Sender: FDA-Public Use
  Company Number: US-AKRIMAX-TIR-2016-0210

PATIENT
  Age: 63 Year
  Sex: Female
  Weight: 81.72 kg

DRUGS (4)
  1. SYNTHROID [Suspect]
     Active Substance: LEVOTHYROXINE SODIUM
     Indication: HYPOTHYROIDISM
     Dates: start: 201404, end: 201404
  2. TIROSINT [Suspect]
     Active Substance: LEVOTHYROXINE SODIUM
     Indication: HYPOTHYROIDISM
     Dosage: 100MCG DAILY
     Route: 048
     Dates: start: 2014, end: 201404
  3. TIROSINT [Suspect]
     Active Substance: LEVOTHYROXINE SODIUM
     Dosage: 100MCG DAILY
     Route: 048
     Dates: start: 201404, end: 2015
  4. TIROSINT [Suspect]
     Active Substance: LEVOTHYROXINE SODIUM
     Dosage: 100MCG DAILY, MONDAY THROUGH FRIDAY
     Route: 048
     Dates: start: 2015

REACTIONS (7)
  - Coronary artery occlusion [Unknown]
  - Malaise [Unknown]
  - Weight decreased [Unknown]
  - Thyroid function test abnormal [Unknown]
  - Coronary artery bypass [Unknown]
  - Blood pressure increased [Unknown]
  - Cardiac flutter [Unknown]

NARRATIVE: CASE EVENT DATE: 2014
